FAERS Safety Report 6098492-8 (Version None)
Quarter: 2009Q1

REPORT INFORMATION
  Report Type: 
  Country: None (occurrence: None)
  Receive Date: 20090302
  Receipt Date: 20090130
  Transmission Date: 20090719
  Serious: No
  Sender: FDA-Public Use
  Company Number: US-BAYER-200912281NA

PATIENT
  Age: 51 Year
  Sex: Male

DRUGS (6)
  1. LEVITRA [Suspect]
     Indication: ERECTILE DYSFUNCTION
     Route: 048
     Dates: start: 20081201
  2. BUPROPION HCL [Concomitant]
     Indication: DEPRESSION
     Dosage: TOTAL DAILY DOSE: 300 MG
  3. ETODOLAC [Concomitant]
     Indication: ARTHRALGIA
     Dosage: TOTAL DAILY DOSE: 800 MG
  4. TRAZODONE HCL [Concomitant]
     Indication: INSOMNIA
     Dosage: TOTAL DAILY DOSE: 25 MG
  5. MULTI-VITAMIN [Concomitant]
  6. GLUCOSAMINE [Concomitant]

REACTIONS (1)
  - ERECTILE DYSFUNCTION [None]
